FAERS Safety Report 10660865 (Version 2)
Quarter: 2015Q1

REPORT INFORMATION
  Report Type: Other
  Country: IT (occurrence: IT)
  Receive Date: 20141218
  Receipt Date: 20150102
  Transmission Date: 20150720
  Serious: Yes (Hospitalization, Other)
  Sender: FDA-Public Use
  Company Number: IT-SUN PHARMACEUTICAL INDUSTRIES LTD-2014SUN02859

PATIENT

DRUGS (8)
  1. 1-U-D-5-DEOSSIRIBOFURANOSIL-5-FLUOROURACIL [Suspect]
     Active Substance: FLUOROURACIL
     Indication: ADENOCARCINOMA GASTRIC
     Dosage: 670 MG CYCLICAL
     Route: 040
     Dates: start: 20140424, end: 20140913
  2. 1-U-D-5-DEOSSIRIBOFURANOSIL-5-FLUOROURACIL [Suspect]
     Active Substance: FLUOROURACIL
     Dosage: 4050 MG CYCLICAL
     Route: 041
     Dates: start: 20140424, end: 20140913
  3. OXALIPLATIN. [Suspect]
     Active Substance: OXALIPLATIN
     Indication: ADENOCARCINOMA GASTRIC
     Dosage: 140 MG CYCLICAL
     Route: 042
     Dates: start: 20140424, end: 20140913
  4. 1-U-D-5-DEOSSIRIBOFURANOSIL-5-FLUOROURACIL [Suspect]
     Active Substance: FLUOROURACIL
     Dosage: 3790 MG,CYCLIC
     Route: 041
     Dates: start: 20140424, end: 20140913
  5. LEVOFOLINIC ACID (AS DISODIUM LEVOFOLINATE) [Concomitant]
     Dosage: 330 MG
     Route: 042
     Dates: start: 20140424, end: 20140913
  6. OXALIPLATIN. [Suspect]
     Active Substance: OXALIPLATIN
     Dosage: 130 MG CYCLIC
     Route: 042
     Dates: start: 20140424, end: 20140913
  7. LEVOFOLINIC ACID (AS DISODIUM LEVOFOLINATE) [Concomitant]
     Dosage: 320 MG, UNK
     Route: 042
     Dates: start: 20140424, end: 20140913
  8. 1-U-D-5-DEOSSIRIBOFURANOSIL-5-FLUOROURACIL [Suspect]
     Active Substance: FLUOROURACIL
     Dosage: 630 MG, CYCLIC
     Route: 040
     Dates: start: 20140424, end: 20140913

REACTIONS (5)
  - Bronchopneumonia [Recovering/Resolving]
  - Thrombocytopenia [Recovering/Resolving]
  - Paraesthesia [Unknown]
  - Leukopenia [Recovering/Resolving]
  - Neutropenia [Recovering/Resolving]

NARRATIVE: CASE EVENT DATE: 20140524
